FAERS Safety Report 10799215 (Version 1)
Quarter: 2015Q1

REPORT INFORMATION
  Report Type: Spontaneous
  Country: US (occurrence: US)
  Receive Date: 20150216
  Receipt Date: 20150216
  Transmission Date: 20150721
  Serious: No
  Sender: FDA-Public Use
  Company Number: US-ALLERGAN-1402544US

PATIENT
  Sex: Female

DRUGS (8)
  1. REFRESH P.M. [Suspect]
     Active Substance: MINERAL OIL\PETROLATUM
     Indication: DRY EYE
     Dosage: UNK
     Dates: start: 201306
  2. REFRESH TEARS [Concomitant]
     Active Substance: CARBOXYMETHYLCELLULOSE SODIUM
     Indication: DRY EYE
     Dosage: 2 GTT, PRN
     Route: 047
  3. RESTASIS [Suspect]
     Active Substance: CYCLOSPORINE
     Dosage: 2 GTT, QHS
     Route: 047
  4. PREDNISONE. [Concomitant]
     Active Substance: PREDNISONE
     Indication: RHEUMATOID ARTHRITIS
     Dosage: 5 MG, PRN
     Route: 048
     Dates: start: 2012
  5. BLOOD PRESSURE MEDICINE WITH DIURETIC NOS [Concomitant]
     Indication: HYPERTENSION
     Dosage: ^DOUBLE THE DOSE^
     Route: 048
     Dates: start: 201312
  6. BLOOD PRESSURE MEDICINE WITHOUT DIURETIC NOS [Concomitant]
     Indication: HYPERTENSION
     Dosage: UNK
     Route: 048
     Dates: end: 201312
  7. ARAVA [Concomitant]
     Active Substance: LEFLUNOMIDE
     Indication: RHEUMATOID ARTHRITIS
     Dosage: 20 MG, QD
     Route: 048
     Dates: start: 2012
  8. RESTASIS [Suspect]
     Active Substance: CYCLOSPORINE
     Indication: DRY EYE
     Dosage: MORE THAN ONE GTT, OU QAM
     Route: 047

REACTIONS (5)
  - Incorrect dose administered [Unknown]
  - Deposit eye [Recovered/Resolved]
  - Wrong technique in drug usage process [Unknown]
  - Drug administered at inappropriate site [Unknown]
  - Foreign body in eye [Recovered/Resolved]
